FAERS Safety Report 4911250-X (Version None)
Quarter: 2006Q1

REPORT INFORMATION
  Report Type: 
  Country: None (occurrence: None)
  Receive Date: 20060209
  Receipt Date: 20060127
  Transmission Date: 20060701
  Serious: Yes (Hospitalization, Other)
  Sender: FDA-Public Use
  Company Number: HQWYE573130JAN06

PATIENT
  Age: 3 Year
  Sex: Male

DRUGS (2)
  1. CHILDREN'S ADVIL [Suspect]
     Indication: NECK PAIN
     Dosage: ORAL
     Route: 048
     Dates: start: 20050206
  2. CHILDREN'S ADVIL [Suspect]
     Indication: PYREXIA
     Dosage: ORAL
     Route: 048
     Dates: start: 20050206

REACTIONS (12)
  - CONDITION AGGRAVATED [None]
  - DECREASED APPETITE [None]
  - DRUG INEFFECTIVE [None]
  - LYMPHADENITIS [None]
  - LYMPHADENOPATHY [None]
  - MEAN CELL VOLUME DECREASED [None]
  - NECK PAIN [None]
  - NEUTROPHIL COUNT INCREASED [None]
  - PHARYNGEAL ERYTHEMA [None]
  - PLATELET COUNT INCREASED [None]
  - TORTICOLLIS [None]
  - WHITE BLOOD CELLS URINE POSITIVE [None]
